FAERS Safety Report 6288635-5 (Version None)
Quarter: 2009Q3

REPORT INFORMATION
  Report Type: 
  Country: None (occurrence: None)
  Receive Date: 20090729
  Receipt Date: 20090723
  Transmission Date: 20100115
  Serious: Yes (Other)
  Sender: FDA-Public Use
  Company Number: JP-AVENTIS-200912088JP

PATIENT

DRUGS (1)
  1. ARAVA [Suspect]
     Route: 048
     Dates: start: 20070601

REACTIONS (1)
  - FRACTURE [None]
